FAERS Safety Report 9587774 (Version 1)
Quarter: 2013Q4

REPORT INFORMATION
  Report Type: Spontaneous
  Country: DE (occurrence: DE)
  Receive Date: 20131003
  Receipt Date: 20131003
  Transmission Date: 20140711
  Serious: Yes (Other)
  Sender: FDA-Public Use
  Company Number: DE-TEVA-435011GER

PATIENT
  Sex: Male

DRUGS (2)
  1. LEVODOPA [Suspect]
     Indication: PARKINSON^S DISEASE
     Dosage: 2 TABLET DAILY; 1 TABLET = 100 MG LEVODOPA AND 25 MG CARBIDOPA
     Route: 048
     Dates: start: 201306
  2. LEVODOPA [Suspect]
     Dosage: 3 TABLET DAILY;
     Route: 048

REACTIONS (4)
  - Osteomalacia [Not Recovered/Not Resolved]
  - Neuralgia [Not Recovered/Not Resolved]
  - Hypoaesthesia [Not Recovered/Not Resolved]
  - Cardiovascular disorder [Not Recovered/Not Resolved]
